FAERS Safety Report 21714798 (Version 2)
Quarter: 2022Q4

REPORT INFORMATION
  Report Type: Spontaneous
  Country: CN (occurrence: CN)
  Receive Date: 20221212
  Receipt Date: 20221215
  Transmission Date: 20230113
  Serious: Yes (Other)
  Sender: FDA-Public Use
  Company Number: None

PATIENT
  Age: 70 Year
  Sex: Male
  Weight: 66 kg

DRUGS (8)
  1. CYCLOPHOSPHAMIDE [Suspect]
     Active Substance: CYCLOPHOSPHAMIDE
     Indication: Mantle cell lymphoma
     Dosage: 0.8 G QD, DILUTE WITH 30 ML 0.9 % SODIUM CHLORIDE (PUSH ST)
     Route: 042
     Dates: start: 20221012, end: 20221012
  2. SODIUM CHLORIDE [Suspect]
     Active Substance: SODIUM CHLORIDE
     Indication: Medication dilution
     Dosage: 30 ML, QD, USED TO DILUTE WITH 0.8 G CYCLOPHOSPHAMIDE
     Route: 042
     Dates: start: 20221012, end: 20221012
  3. SODIUM CHLORIDE [Suspect]
     Active Substance: SODIUM CHLORIDE
     Dosage: QD, 500 ML, USED TO DILUTE WITH 500 MG RITUXIMAB
     Route: 041
     Dates: start: 20221012, end: 20221012
  4. SODIUM CHLORIDE [Suspect]
     Active Substance: SODIUM CHLORIDE
     Dosage: 30 ML, QD, USED TO DILUTE WITH 30 MG EPIRUBICIN HYDROCHLORIDE
     Route: 042
     Dates: start: 20221012, end: 20221013
  5. SODIUM CHLORIDE [Suspect]
     Active Substance: SODIUM CHLORIDE
     Dosage: 30 ML, QD, USE DTO DILUTE WITH 4 MG VINDESINE SULFATE
     Route: 042
     Dates: start: 20221012, end: 20221012
  6. RITUXIMAB [Concomitant]
     Active Substance: RITUXIMAB
     Indication: Mantle cell lymphoma
     Dosage: 500 MG QD, USED TO DILUTE WITH 500 ML 0.9 % SODIUM CHLORIDE
     Route: 041
     Dates: start: 20221011, end: 20221011
  7. EPIRUBICIN HYDROCHLORIDE [Concomitant]
     Active Substance: EPIRUBICIN HYDROCHLORIDE
     Indication: Mantle cell lymphoma
     Dosage: 30 MG, QD, USED TO DILUTE WITH 30 ML 0.9 % SODIUM CHLORIDE (PUSH ST)
     Route: 042
     Dates: start: 20221012, end: 20221013
  8. VINDESINE SULFATE [Concomitant]
     Active Substance: VINDESINE SULFATE
     Indication: Mantle cell lymphoma
     Dosage: 4 MG QD, USED TO DILUTE WITH 30 ML 0.9 % SODIUM CHLORIDE PUSH
     Route: 042
     Dates: start: 20221012, end: 20221012

REACTIONS (1)
  - Hepatic function abnormal [Recovering/Resolving]

NARRATIVE: CASE EVENT DATE: 20221016
